FAERS Safety Report 5328432-8 (Version None)
Quarter: 2007Q2

REPORT INFORMATION
  Report Type: 
  Country: None (occurrence: None)
  Receive Date: 20070516
  Receipt Date: 20070516
  Transmission Date: 20071010
  Serious: Yes (Other)
  Sender: FDA-Public Use
  Company Number: None

PATIENT
  Sex: Male

DRUGS (6)
  1. REVLIMID [Suspect]
     Indication: CHRONIC LYMPHOCYTIC LEUKAEMIA
     Dosage: 10MG DAILY PO
     Route: 048
  2. CLINDAMYCIN [Concomitant]
  3. CIPRO [Concomitant]
  4. ACCUZYME OINTMENT [Concomitant]
  5. IODOSORB GEL [Concomitant]
  6. LOVENOX [Concomitant]

REACTIONS (2)
  - ANAEMIA [None]
  - NEUTROPENIA [None]
